FAERS Safety Report 19248996 (Version 1)
Quarter: 2021Q2

REPORT INFORMATION
  Report Type: Spontaneous
  Country: US (occurrence: US)
  Receive Date: 20210512
  Receipt Date: 20210512
  Transmission Date: 20210717
  Serious: Yes (Other)
  Sender: FDA-Public Use
  Company Number: US-COLGATE PALMOLIVE COMPANY-20210501092

PATIENT
  Age: 72 Year
  Sex: Male

DRUGS (1)
  1. COLGATE TOTAL CLEAN MINT [Suspect]
     Active Substance: SODIUM FLUORIDE\TRICLOSAN
     Dosage: UNKNOWN DOSE, BID
     Dates: end: 2019

REACTIONS (5)
  - Nephrolithiasis [Unknown]
  - Osteoporosis [Unknown]
  - Thyroid cancer [Unknown]
  - Hyperparathyroidism [Unknown]
  - Stress [Unknown]
